FAERS Safety Report 6976624-4 (Version None)
Quarter: 2010Q3

REPORT INFORMATION
  Report Type: 
  Country: None (occurrence: None)
  Receive Date: 20100910
  Receipt Date: 20100831
  Transmission Date: 20110219
  Serious: Yes (Hospitalization)
  Sender: FDA-Public Use
  Company Number: DE-JNJFOC-20081202582

PATIENT
  Sex: Male
  Weight: 106 kg

DRUGS (18)
  1. CNTO 1275 [Suspect]
     Indication: PSORIASIS
     Route: 058
  2. CNTO 1275 [Suspect]
     Route: 058
  3. CNTO 1275 [Suspect]
     Route: 058
  4. CNTO 1275 [Suspect]
     Route: 058
  5. CNTO 1275 [Suspect]
     Route: 058
  6. CNTO 1275 [Suspect]
     Route: 058
  7. CNTO 1275 [Suspect]
     Route: 058
  8. CNTO 1275 [Suspect]
     Route: 058
  9. CNTO 1275 [Suspect]
     Route: 058
  10. CNTO 1275 [Suspect]
     Route: 058
  11. CNTO 1275 [Suspect]
     Route: 058
  12. CNTO 1275 [Suspect]
     Route: 058
  13. CNTO 1275 [Suspect]
     Route: 058
  14. CNTO 1275 [Suspect]
     Route: 058
  15. PLACEBO [Suspect]
     Indication: PSORIASIS
     Dosage: WEEK 0
     Route: 058
  16. PLACEBO [Suspect]
     Dosage: WEEK 4
     Route: 058
  17. IVABRADINE [Concomitant]
     Route: 048
  18. VENLAFAXINE HYDROCHLORIDE [Concomitant]
     Route: 048

REACTIONS (1)
  - DIVERTICULITIS [None]
